FAERS Safety Report 5097354-2 (Version None)
Quarter: 2006Q3

REPORT INFORMATION
  Report Type: 
  Country: None (occurrence: None)
  Receive Date: 20060906
  Receipt Date: 20060810
  Transmission Date: 20061208
  Serious: Yes (Life-Threatening, Hospitalization)
  Sender: FDA-Public Use
  Company Number: FR-BRISTOL-MYERS SQUIBB COMPANY-13472782

PATIENT
  Age: 51 Year
  Sex: Male
  Weight: 89 kg

DRUGS (3)
  1. ABILIFY [Suspect]
     Indication: BIPOLAR DISORDER
     Route: 048
     Dates: start: 20060201
  2. DEPAKOTE [Concomitant]
     Route: 048
     Dates: start: 20060101
  3. ANAFRANIL [Concomitant]
     Route: 048
     Dates: start: 20060101

REACTIONS (5)
  - CYTOLYTIC HEPATITIS [None]
  - LOSS OF CONSCIOUSNESS [None]
  - NEUROLEPTIC MALIGNANT SYNDROME [None]
  - RENAL FAILURE ACUTE [None]
  - SHOCK [None]
